FAERS Safety Report 5470800-8 (Version None)
Quarter: 2007Q3

REPORT INFORMATION
  Report Type: 
  Country: None (occurrence: None)
  Receive Date: 20070928
  Receipt Date: 20070919
  Transmission Date: 20080115
  Serious: Yes (Hospitalization)
  Sender: FDA-Public Use
  Company Number: US-ELI_LILLY_AND_COMPANY-US200709003837

PATIENT
  Sex: Female

DRUGS (1)
  1. ZYPREXA [Suspect]
     Dates: start: 20000101, end: 20010101

REACTIONS (4)
  - ANGINA PECTORIS [None]
  - DIABETES MELLITUS [None]
  - HOSPITALISATION [None]
  - WEIGHT INCREASED [None]
